FAERS Safety Report 6184612-3 (Version None)
Quarter: 2009Q2

REPORT INFORMATION
  Report Type: 
  Country: None (occurrence: None)
  Receive Date: 20090508
  Receipt Date: 20090505
  Transmission Date: 20091009
  Serious: Yes (Death, Hospitalization, Other)
  Sender: FDA-Public Use
  Company Number: PHEH2008US01388

PATIENT
  Sex: Female
  Weight: 62.585 kg

DRUGS (4)
  1. AREDIA [Suspect]
  2. ZOMETA [Suspect]
  3. FASLODEX [Concomitant]
     Dosage: UNK
     Dates: start: 20021001
  4. ARIMIDEX [Concomitant]

REACTIONS (15)
  - ANAEMIA [None]
  - ANXIETY [None]
  - DEATH [None]
  - DEFORMITY [None]
  - DISABILITY [None]
  - DISEASE PROGRESSION [None]
  - GINGIVAL ABSCESS [None]
  - IMPAIRED HEALING [None]
  - INFECTION [None]
  - INJURY [None]
  - METASTASES TO LIVER [None]
  - OSTEONECROSIS [None]
  - OSTEOPENIA [None]
  - PAIN [None]
  - RENAL FAILURE CHRONIC [None]
